FAERS Safety Report 10246044 (Version 1)
Quarter: 2014Q2

REPORT INFORMATION
  Report Type: Spontaneous
  Country: US (occurrence: None)
  Receive Date: 20140617
  Receipt Date: 20140617
  Transmission Date: 20141212
  Serious: No
  Sender: FDA-Public Use
  Company Number: None

PATIENT
  Age: 55 Year
  Sex: Female
  Weight: 81.19 kg

DRUGS (2)
  1. CELEXA [Suspect]
     Indication: BACK PAIN
     Dosage: 1 PILL ONCE DAILY
  2. CELEXA [Suspect]
     Indication: DEPRESSION
     Dosage: 1 PILL ONCE DAILY

REACTIONS (9)
  - Rash pruritic [None]
  - Rash erythematous [None]
  - Alopecia [None]
  - Pruritus [None]
  - Sneezing [None]
  - Oropharyngeal pain [None]
  - Throat irritation [None]
  - Paraesthesia oral [None]
  - Acne [None]
